FAERS Safety Report 9408070 (Version 2)
Quarter: 2013Q3

REPORT INFORMATION
  Report Type: Spontaneous
  Country: DE (occurrence: DE)
  Receive Date: 20130718
  Receipt Date: 20130927
  Transmission Date: 20140515
  Serious: Yes (Other)
  Sender: FDA-Public Use
  Company Number: DE-TEVA-417462GER

PATIENT
  Sex: Female

DRUGS (1)
  1. AZILECT [Suspect]
     Indication: GAIT DISTURBANCE

REACTIONS (2)
  - Hip fracture [Unknown]
  - Fall [Unknown]
